FAERS Safety Report 25968693 (Version 1)
Quarter: 2025Q4

REPORT INFORMATION
  Report Type: Report from Study
  Country: EU (occurrence: EU)
  Receive Date: 20251028
  Receipt Date: 20251028
  Transmission Date: 20260118
  Serious: No
  Sender: KARYOPHARM THERAPEUTICS
  Company Number: EU-KARYOPHARM-2025KPT100873

PATIENT

DRUGS (1)
  1. SELINEXOR [Suspect]
     Active Substance: SELINEXOR
     Indication: Lymphoma
     Dosage: 80 MG FOR A WEEK
     Route: 065

REACTIONS (1)
  - Off label use [Unknown]
